FAERS Safety Report 4940422-3 (Version None)
Quarter: 2006Q1

REPORT INFORMATION
  Report Type: 
  Country: None (occurrence: None)
  Receive Date: 20060131
  Receipt Date: 20051114
  Transmission Date: 20060701
  Serious: No
  Sender: FDA-Public Use
  Company Number: 200519327US

PATIENT
  Age: 84 Year
  Sex: Female
  Weight: 44 kg

DRUGS (7)
  1. KETEK [Suspect]
     Indication: UPPER RESPIRATORY TRACT INFECTION
     Dosage: 800 MG QD PO
     Route: 048
     Dates: start: 20051109, end: 20051111
  2. DILTIAZEM [Concomitant]
  3. GABAPENTIN [Concomitant]
  4. PREDNISONE [Concomitant]
  5. POTASSIUM [Concomitant]
  6. BUMEX [Concomitant]
  7. VITAMIN A [Concomitant]

REACTIONS (1)
  - VISION BLURRED [None]
